FAERS Safety Report 15504602 (Version 1)
Quarter: 2018Q4

REPORT INFORMATION
  Report Type: Spontaneous
  Country: US (occurrence: US)
  Receive Date: 20181016
  Receipt Date: 20181016
  Transmission Date: 20190205
  Serious: Yes (Disabling, Other)
  Sender: FDA-Public Use
  Company Number: None

PATIENT
  Age: 1 Year
  Sex: Male
  Weight: 13.5 kg

DRUGS (1)
  1. MIRALAX [Suspect]
     Active Substance: POLYETHYLENE GLYCOL 3350
     Indication: CONSTIPATION
     Dosage: ?          QUANTITY:1 TABLESPOON(S);?
     Route: 048

REACTIONS (6)
  - Muscle spasms [None]
  - Intentional self-injury [None]
  - Conversion disorder [None]
  - Anxiety [None]
  - Hair injury [None]
  - Abdominal pain [None]

NARRATIVE: CASE EVENT DATE: 20150520
